FAERS Safety Report 8342158-8 (Version None)
Quarter: 2012Q2

REPORT INFORMATION
  Report Type: 
  Country: None (occurrence: None)
  Receive Date: 20120507
  Receipt Date: 20120420
  Transmission Date: 20120825
  Serious: Yes (Other)
  Sender: FDA-Public Use
  Company Number: CHPA2012US009801

PATIENT
  Age: 62 Year
  Sex: Female

DRUGS (1)
  1. ACETAMINOPHEN, DIPHENHYDRAMINE CITRATE [Suspect]
     Indication: HEADACHE
     Dosage: 1 DF, EVERY NIGHT
     Route: 048

REACTIONS (2)
  - DRUG DEPENDENCE [None]
  - INCORRECT DRUG ADMINISTRATION DURATION [None]
